FAERS Safety Report 12406216 (Version 1)
Quarter: 2016Q2

REPORT INFORMATION
  Report Type: Report from Study
  Country: CA (occurrence: CA)
  Receive Date: 20160526
  Receipt Date: 20160526
  Transmission Date: 20160815
  Serious: Yes (Other)
  Sender: FDA-Public Use
  Company Number: CA-AMGEN-CANSL2016064698

PATIENT
  Age: 69 Year
  Sex: Female

DRUGS (2)
  1. SYNTHROID [Concomitant]
     Active Substance: LEVOTHYROXINE SODIUM
     Dosage: UNK
  2. PROLIA [Suspect]
     Active Substance: DENOSUMAB
     Indication: PRODUCT USED FOR UNKNOWN INDICATION
     Dosage: 60 MG/ML, UNK
     Route: 065
     Dates: start: 20140414

REACTIONS (4)
  - Skin exfoliation [Not Recovered/Not Resolved]
  - Dysphagia [Recovering/Resolving]
  - Thoracic vertebral fracture [Unknown]
  - Seizure [Unknown]

NARRATIVE: CASE EVENT DATE: 201504
